FAERS Safety Report 9055327 (Version 1)
Quarter: 2013Q1

REPORT INFORMATION
  Report Type: Spontaneous
  Country: US (occurrence: US)
  Receive Date: 20130206
  Receipt Date: 20130206
  Transmission Date: 20140127
  Serious: Yes (Death, Life-Threatening)
  Sender: FDA-Public Use
  Company Number: US-ABBOTT-13P-163-1044405-00

PATIENT
  Sex: 0

DRUGS (2)
  1. NIMBEX [Suspect]
     Indication: PRODUCT USED FOR UNKNOWN INDICATION
     Dosage: 200MG/20ML
     Dates: end: 20130131
  2. NIMBEX [Suspect]
     Dosage: 20MG/10ML

REACTIONS (1)
  - Pyrexia [Fatal]
